FAERS Safety Report 6487971-7 (Version None)
Quarter: 2009Q4

REPORT INFORMATION
  Report Type: 
  Country: None (occurrence: None)
  Receive Date: 20091209
  Receipt Date: 20091209
  Transmission Date: 20100525
  Serious: No
  Sender: FDA-Public Use
  Company Number: None

PATIENT
  Age: 56 Year
  Sex: Male

DRUGS (1)
  1. LOVASTATIN [Suspect]
     Dosage: 20 MG EVERY DAY PO
     Route: 048
     Dates: start: 20070629, end: 20080222

REACTIONS (1)
  - BLOOD CREATINE PHOSPHOKINASE INCREASED [None]
